FAERS Safety Report 5916994-9 (Version None)
Quarter: 2008Q4

REPORT INFORMATION
  Report Type: 
  Country: None (occurrence: None)
  Receive Date: 20081014
  Receipt Date: 20081006
  Transmission Date: 20090506
  Serious: Yes (Hospitalization)
  Sender: FDA-Public Use
  Company Number: GB-RANBAXY-2008RR-18459

PATIENT
  Age: 56 Year
  Sex: Male

DRUGS (11)
  1. GABAPENTIN [Suspect]
     Dosage: 300 MG, TID
     Route: 048
  2. FENTANYL [Suspect]
     Indication: PAIN
     Dosage: UNK MG, TID
     Route: 048
  3. HALOPERIDOL RANBAXY 2 MG/ML [Suspect]
  4. HYDROMORPHONE HCL [Suspect]
     Indication: ANALGESIA
     Dosage: 25 MG, QD
     Route: 058
  5. MORPHINE SULFATE INJ [Suspect]
     Indication: ANALGESIA
  6. OXYCONTIN [Suspect]
     Indication: ANALGESIA
     Dosage: 80 MG, BID
  7. ACETAMINOPHEN [Suspect]
     Dosage: 1 G, QID
  8. ALFENTANIL [Concomitant]
     Indication: DRUG ABUSE
     Dosage: 15 MG, UNK
     Route: 058
  9. ALFENTANIL [Concomitant]
     Dosage: 50 MG, UNK
     Route: 058
  10. ALFENTANIL [Concomitant]
     Dosage: 9 MG, UNK
     Route: 058
  11. HYDROMORPHONE HCL [Concomitant]
     Indication: DRUG ABUSE
     Dosage: 1 MG, UNK
     Route: 058

REACTIONS (6)
  - BACK PAIN [None]
  - DRUG EFFECT DECREASED [None]
  - DRUG WITHDRAWAL SYNDROME [None]
  - INFECTION [None]
  - RENAL IMPAIRMENT [None]
  - THERAPEUTIC AGENT TOXICITY [None]
